FAERS Safety Report 16795538 (Version 1)
Quarter: 2019Q3

REPORT INFORMATION
  Report Type: Report from Study
  Country: JP (occurrence: JP)
  Receive Date: 20190911
  Receipt Date: 20190911
  Transmission Date: 20191005
  Serious: Yes (Death)
  Sender: FDA-Public Use
  Company Number: JP-BAUSCH-BL-2019-025974

PATIENT
  Age: 44 Year
  Sex: Female

DRUGS (2)
  1. CHOREAZINE TABLETS 12.5MG (TETRABENAZINE) [Suspect]
     Active Substance: TETRABENAZINE
     Indication: HUNTINGTON^S DISEASE
     Route: 048
     Dates: start: 20161224, end: 20180324
  2. ENSURE [Concomitant]
     Active Substance: AMINO ACIDS\DEXTROSE\ELECTROLYTES NOS\SOYBEAN OIL\VITAMINS
     Indication: NUTRITIONAL SUPPLEMENTATION
     Dosage: PARENTERAL NUTRITION, ABOUT 250 ML/DAY
     Route: 048
     Dates: start: 20170916

REACTIONS (1)
  - Choking [Fatal]

NARRATIVE: CASE EVENT DATE: 20180718
